FAERS Safety Report 7658134-4 (Version None)
Quarter: 2011Q3

REPORT INFORMATION
  Report Type: 
  Country: None (occurrence: None)
  Receive Date: 20110805
  Receipt Date: 20110727
  Transmission Date: 20111222
  Serious: Yes (Other)
  Sender: FDA-Public Use
  Company Number: JP-JNJFOC-20110800673

PATIENT
  Age: 8 Decade
  Sex: Female

DRUGS (5)
  1. FENTANYL CITRATE [Suspect]
     Indication: PAIN
     Route: 062
     Dates: start: 20110617, end: 20110704
  2. PROCHLORPERAZINE [Concomitant]
     Route: 065
  3. LENDORMIN [Concomitant]
     Route: 048
  4. LYRICA [Concomitant]
     Route: 048
  5. MORPHINE HCL ELIXIR [Suspect]
     Indication: PRODUCT USED FOR UNKNOWN INDICATION
     Dosage: 10
     Route: 065
     Dates: start: 20110616, end: 20110616

REACTIONS (5)
  - WRONG TECHNIQUE IN DRUG USAGE PROCESS [None]
  - CONSTIPATION [None]
  - VOMITING [None]
  - RESPIRATORY DEPRESSION [None]
  - DELIRIUM [None]
